FAERS Safety Report 24591203 (Version 1)
Quarter: 2024Q4

REPORT INFORMATION
  Report Type: Spontaneous
  Country: US (occurrence: US)
  Receive Date: 20241108
  Receipt Date: 20241108
  Transmission Date: 20250115
  Serious: No
  Sender: JOHNSON AND JOHNSON
  Company Number: US-JNJFOC-20241049344

PATIENT
  Age: 30 Year
  Sex: Female
  Weight: 77 kg

DRUGS (11)
  1. STELARA [Suspect]
     Active Substance: USTEKINUMAB
     Indication: Product used for unknown indication
     Route: 058
  2. LUMRYZ [Suspect]
     Active Substance: SODIUM OXYBATE
     Indication: Narcolepsy
     Dosage: ONCE NIGHTLY
     Route: 048
     Dates: start: 20231113, end: 20231119
  3. LUMRYZ [Suspect]
     Active Substance: SODIUM OXYBATE
     Dosage: ONCE NIGHTLY
     Route: 048
     Dates: start: 20231120, end: 20231203
  4. LUMRYZ [Suspect]
     Active Substance: SODIUM OXYBATE
     Dosage: ONCE NIGHTLY
     Route: 048
     Dates: start: 20231120, end: 20231203
  5. LUMRYZ [Suspect]
     Active Substance: SODIUM OXYBATE
     Dosage: ONCE NIGHTLY
     Route: 048
     Dates: start: 20231204
  6. ADDERALL [Concomitant]
     Active Substance: AMPHETAMINE ASPARTATE\AMPHETAMINE SULFATE\DEXTROAMPHETAMINE SACCHARATE\DEXTROAMPHETAMINE SULFATE
     Indication: Product used for unknown indication
  7. LEVOTHYROXINE [Concomitant]
     Active Substance: LEVOTHYROXINE
     Indication: Product used for unknown indication
  8. ZEPOSIA [Concomitant]
     Active Substance: OZANIMOD HYDROCHLORIDE
     Indication: Product used for unknown indication
  9. ERGOCALCIFEROL [Concomitant]
     Active Substance: ERGOCALCIFEROL
     Indication: Product used for unknown indication
  10. IRON [Concomitant]
     Active Substance: IRON
     Indication: Product used for unknown indication
  11. LORATADINE [Concomitant]
     Active Substance: LORATADINE
     Indication: Product used for unknown indication

REACTIONS (8)
  - Gastrointestinal pain [Not Recovered/Not Resolved]
  - Middle insomnia [Unknown]
  - Discomfort [Unknown]
  - Sedation [Unknown]
  - Dyspnoea [Unknown]
  - Nausea [Unknown]
  - Nocturia [Unknown]
  - Somnolence [Unknown]

NARRATIVE: CASE EVENT DATE: 20240801
